FAERS Safety Report 13954148 (Version 1)
Quarter: 2017Q3

REPORT INFORMATION
  Report Type: Spontaneous
  Country: US (occurrence: None)
  Receive Date: 20170911
  Receipt Date: 20170911
  Transmission Date: 20171128
  Serious: Yes (Other)
  Sender: FDA-Public Use
  Company Number: None

PATIENT
  Age: 67 Year
  Sex: Female
  Weight: 78.47 kg

DRUGS (6)
  1. VITAMIN D3 [Concomitant]
     Active Substance: CHOLECALCIFEROL
  2. MYLAN LIDOCAINE PATCH 5% [Suspect]
     Active Substance: LIDOCAINE
     Indication: FIBROMYALGIA
     Dosage: SKIN
     Route: 061
     Dates: start: 20170414, end: 20170415
  3. PAXIL [Concomitant]
     Active Substance: PAROXETINE HYDROCHLORIDE
  4. BABY ASPIRIN [Concomitant]
     Active Substance: ASPIRIN
  5. MYLAN LIDOCAINE PATCH 5% [Suspect]
     Active Substance: LIDOCAINE
     Indication: PAIN
     Dosage: SKIN
     Route: 061
     Dates: start: 20170414, end: 20170415
  6. CRESTOR [Concomitant]
     Active Substance: ROSUVASTATIN CALCIUM

REACTIONS (7)
  - Blood glucose increased [None]
  - Wrong technique in product usage process [None]
  - Drug ineffective [None]
  - Product adhesion issue [None]
  - Blood pressure increased [None]
  - Pain [None]
  - Hyperhidrosis [None]

NARRATIVE: CASE EVENT DATE: 20170404
